FAERS Safety Report 14254134 (Version 3)
Quarter: 2017Q4

REPORT INFORMATION
  Report Type: Report from Study
  Country: ES (occurrence: ES)
  Receive Date: 20171206
  Receipt Date: 20171220
  Transmission Date: 20180321
  Serious: Yes (Hospitalization)
  Sender: FDA-Public Use
  Company Number: ES-UNITED THERAPEUTICS-UNT-2017-016927

PATIENT
  Age: 52 Year
  Sex: Female
  Weight: 52 kg

DRUGS (11)
  1. LOPERAMIDE [Concomitant]
     Active Substance: LOPERAMIDE
     Indication: DIARRHOEA
     Dosage: 2 MG, QID
     Route: 048
     Dates: start: 20171119
  2. METOCLOPRAMIDE. [Concomitant]
     Active Substance: METOCLOPRAMIDE
     Indication: NAUSEA
     Dosage: 10, UNK
     Route: 042
     Dates: start: 20171116, end: 20171116
  3. PARACETAMOL [Concomitant]
     Active Substance: ACETAMINOPHEN
     Indication: ABDOMINAL PAIN
     Dosage: 1 G, UNK
     Route: 042
     Dates: start: 20171116, end: 20171116
  4. NOLOTIL /06276702/ [Concomitant]
     Active Substance: METAMIZOLE MAGNESIUM
     Indication: ABDOMINAL PAIN
     Dosage: 2, UNK
     Route: 042
     Dates: start: 20171116, end: 20171116
  5. IBUPROFEN. [Concomitant]
     Active Substance: IBUPROFEN
     Indication: PAIN
     Dosage: UNK MG, QD PRN
     Route: 048
     Dates: start: 2017
  6. IRINOTECAN [Suspect]
     Active Substance: IRINOTECAN
     Indication: SMALL CELL LUNG CANCER
     Dosage: 560 MG TOTAL DAILY DOSE
     Route: 041
     Dates: start: 20171116, end: 20171126
  7. DEXAMETHASONE. [Concomitant]
     Active Substance: DEXAMETHASONE
     Indication: ABDOMINAL PAIN
     Dosage: 8 MG, UNK
     Route: 042
     Dates: start: 20171116, end: 20171116
  8. MORPHINE [Concomitant]
     Active Substance: MORPHINE
     Indication: ABDOMINAL PAIN
     Dosage: 10 MG, UNK
     Route: 058
     Dates: start: 20171116, end: 20171116
  9. SALBUTAMOL [Concomitant]
     Active Substance: ALBUTEROL
     Indication: LUNG NEOPLASM MALIGNANT
     Dosage: 100 ?G, TID, PRN
     Dates: start: 20170302
  10. DINUTUXIMAB [Suspect]
     Active Substance: DINUTUXIMAB
     Indication: SMALL CELL LUNG CANCER
     Dosage: 22 MG, TOTAL DAILY DOSE
     Route: 041
     Dates: start: 20171116, end: 20171126
  11. PANTOPRAZOL [Concomitant]
     Active Substance: PANTOPRAZOLE SODIUM
     Indication: PROPHYLAXIS AGAINST GASTROINTESTINAL ULCER
     Dosage: 40 MG, UNK
     Route: 042
     Dates: start: 20171116, end: 20171116

REACTIONS (2)
  - Nausea [Recovered/Resolved]
  - Asthenia [Recovered/Resolved]

NARRATIVE: CASE EVENT DATE: 20171126
